FAERS Safety Report 26127027 (Version 1)
Quarter: 2025Q4

REPORT INFORMATION
  Report Type: Report from Study
  Country: CO (occurrence: None)
  Receive Date: 20251205
  Receipt Date: 20251205
  Transmission Date: 20260117
  Serious: Yes (Hospitalization, Other)
  Sender: UCB
  Company Number: CO-UCBSA-2025068425

PATIENT
  Age: 13 Year

DRUGS (6)
  1. LACOSAMIDE [Suspect]
     Active Substance: LACOSAMIDE
     Indication: Epilepsy
     Dosage: 7 MILLILITER, 2X/DAY (BID)
  2. LACOSAMIDE [Suspect]
     Active Substance: LACOSAMIDE
     Dosage: 10 MILLILITER, 2X/DAY (BID)
  3. LACOSAMIDE [Suspect]
     Active Substance: LACOSAMIDE
     Dosage: 200 MILLIGRAM, 3X/DAY (TID)
  4. LEVETIRACETAM [Concomitant]
     Active Substance: LEVETIRACETAM
     Indication: Seizure
     Dosage: 1000 MILLIGRAM, 3X/DAY (TID)
  5. OXCARBAZEPINE [Concomitant]
     Active Substance: OXCARBAZEPINE
     Indication: Product used for unknown indication
  6. VALCOTE [VALPROATE SEMISODIUM] [Concomitant]
     Indication: Seizure
     Dosage: 500 MG (MORNING)- 1000 MG (NIGHT)

REACTIONS (14)
  - Seizure [Recovered/Resolved]
  - Hippocampal sclerosis [Unknown]
  - Petit mal epilepsy [Unknown]
  - Sleep deficit [Unknown]
  - Insomnia [Unknown]
  - Anxiety [Unknown]
  - Abdominal pain [Unknown]
  - Headache [Unknown]
  - Mood swings [Unknown]
  - Overdose [Unknown]
  - Product dispensing issue [Unknown]
  - Product use issue [Unknown]
  - Therapy interrupted [Unknown]
  - Off label use [Unknown]
